FAERS Safety Report 9781027 (Version 1)
Quarter: 2013Q4

REPORT INFORMATION
  Report Type: Spontaneous
  Country: FR (occurrence: FR)
  Receive Date: 20131224
  Receipt Date: 20131224
  Transmission Date: 20140711
  Serious: Yes (Other)
  Sender: FDA-Public Use
  Company Number: FR-JNJFOC-20131213779

PATIENT
  Age: 87 Year
  Sex: Female

DRUGS (6)
  1. XARELTO [Suspect]
     Indication: CEREBROVASCULAR ACCIDENT PROPHYLAXIS
     Route: 048
  2. XARELTO [Suspect]
     Indication: CEREBROVASCULAR ACCIDENT PROPHYLAXIS
     Route: 048
     Dates: start: 201210
  3. TAHOR [Concomitant]
     Route: 065
  4. ZOPICLONE [Concomitant]
     Route: 065
  5. MONOTILDIEM [Concomitant]
     Route: 065
  6. HEMIGOXINE [Concomitant]
     Route: 065

REACTIONS (2)
  - Extremity necrosis [Unknown]
  - Extremity necrosis [Unknown]
